FAERS Safety Report 4557999-2 (Version None)
Quarter: 2005Q1

REPORT INFORMATION
  Report Type: 
  Country: None (occurrence: None)
  Receive Date: 20050121
  Receipt Date: 20040420
  Transmission Date: 20050727
  Serious: Yes (Other)
  Sender: FDA-Public Use
  Company Number: US-BRISTOL-MYERS SQUIBB COMPANY-12570982

PATIENT
  Age: 46 Month
  Sex: Female

DRUGS (9)
  1. SERZONE [Suspect]
     Dates: start: 20010901, end: 20020509
  2. FELDENE [Concomitant]
  3. GLUCOPHAGE [Concomitant]
  4. OXYGEN [Concomitant]
  5. PAXIL [Concomitant]
  6. EFFEXOR [Concomitant]
  7. GLYBURIDE [Concomitant]
  8. PIROXICAM [Concomitant]
  9. ALPRAZOLAM [Concomitant]

REACTIONS (5)
  - GASTROENTERITIS [None]
  - GASTROOESOPHAGEAL REFLUX DISEASE [None]
  - HEPATIC STEATOSIS [None]
  - TINEA INFECTION [None]
  - VISION BLURRED [None]
